FAERS Safety Report 14113933 (Version 1)
Quarter: 2017Q4

REPORT INFORMATION
  Report Type: Spontaneous
  Country: FR (occurrence: FR)
  Receive Date: 20171023
  Receipt Date: 20171023
  Transmission Date: 20180321
  Serious: Yes (Other)
  Sender: FDA-Public Use
  Company Number: FR-MERCK KGAA-2031133

PATIENT
  Sex: Female

DRUGS (1)
  1. NOVOTHYROX [Suspect]
     Active Substance: LEVOTHYROXINE SODIUM
     Indication: PRODUCT USED FOR UNKNOWN INDICATION
     Dates: end: 20171009

REACTIONS (9)
  - Weight decreased [Unknown]
  - Vomiting [Unknown]
  - Nervous system disorder [Unknown]
  - Eating disorder [Unknown]
  - Insomnia [Unknown]
  - Depression [Unknown]
  - Chest pain [Unknown]
  - Parosmia [Unknown]
  - Pain [Unknown]

NARRATIVE: CASE EVENT DATE: 201703
